FAERS Safety Report 8868565 (Version 1)
Quarter: 2012Q4

REPORT INFORMATION
  Report Type: 
  Country: CA (occurrence: CA)
  Receive Date: 20121024
  Receipt Date: 20121024
  Transmission Date: 20130627
  Serious: Yes (Other)
  Sender: FDA-Public Use
  Company Number: CA-GLAXOSMITHKLINE-A0998552A

PATIENT
  Age: 43 Year
  Sex: Male
  Weight: 70.5 kg

DRUGS (1)
  1. NICODERM CQ [Suspect]
     Indication: SMOKING CESSATION THERAPY
     Dosage: 21MG Per day
     Route: 062
     Dates: start: 2010

REACTIONS (1)
  - Convulsion [Recovered/Resolved]
